FAERS Safety Report 19494573 (Version 1)
Quarter: 2021Q3

REPORT INFORMATION
  Report Type: Spontaneous
  Country: DE (occurrence: DE)
  Receive Date: 20210705
  Receipt Date: 20210705
  Transmission Date: 20211014
  Serious: Yes (Hospitalization)
  Sender: FDA-Public Use
  Company Number: NVSC2021DE146725

PATIENT
  Age: 61 Year
  Sex: Male

DRUGS (3)
  1. DORZOLAMIDE AND TIMOLOL [Suspect]
     Active Substance: DORZOLAMIDE HYDROCHLORIDE\TIMOLOL MALEATE
     Indication: PRODUCT USED FOR UNKNOWN INDICATION
     Dosage: 1 TROPFEN, 1?0?1?0, TROPFEN
     Route: 047
  2. NEPAFENAC [Concomitant]
     Active Substance: NEPAFENAC
     Indication: PRODUCT USED FOR UNKNOWN INDICATION
     Dosage: 1 TROPFEN, 2?0?0?0, TROPFEN
     Route: 047
  3. BRIMONIDINE [Concomitant]
     Active Substance: BRIMONIDINE TARTRATE
     Indication: PRODUCT USED FOR UNKNOWN INDICATION
     Dosage: 1 TROPFEN, 1?1?1?0, TROPFEN
     Route: 047

REACTIONS (5)
  - Nausea [Recovering/Resolving]
  - Renal colic [Recovering/Resolving]
  - Flank pain [Recovering/Resolving]
  - Nocturia [Recovering/Resolving]
  - Back pain [Recovering/Resolving]
